FAERS Safety Report 4580256-5 (Version None)
Quarter: 2005Q1

REPORT INFORMATION
  Report Type: 
  Country: None (occurrence: None)
  Receive Date: 20050214
  Receipt Date: 20050202
  Transmission Date: 20050727
  Serious: Yes (Hospitalization)
  Sender: FDA-Public Use
  Company Number: FR-GLAXOSMITHKLINE-B0369492A

PATIENT
  Age: 28 Year
  Sex: Male

DRUGS (1)
  1. DEROXAT [Suspect]
     Indication: ILL-DEFINED DISORDER
     Route: 048
     Dates: start: 20041225, end: 20050107

REACTIONS (3)
  - FATIGUE [None]
  - HEPATIC STEATOSIS [None]
  - HEPATITIS [None]
